FAERS Safety Report 8217503-4 (Version None)
Quarter: 2012Q1

REPORT INFORMATION
  Report Type: 
  Country: None (occurrence: None)
  Receive Date: 20120305
  Receipt Date: 20111103
  Transmission Date: 20120608
  Serious: Yes (Other)
  Sender: FDA-Public Use
  Company Number: 1000024320

PATIENT
  Age: 64 Year
  Sex: Female

DRUGS (3)
  1. DALIRESP [Suspect]
     Indication: CHRONIC OBSTRUCTIVE PULMONARY DISEASE
     Dosage: 500 MCG (500 MCG, 1 IN 1 D), ORAL
     Route: 048
     Dates: start: 20110722, end: 20110101
  2. ALBUTEROL SULFATE (SALBUTAMOL SULFATE) (SALBUTAMOL SULFATE) [Concomitant]
  3. ATENOLOL (ATENOLOL) (INHALANT) (ATENOLOL) [Concomitant]

REACTIONS (13)
  - ANGER [None]
  - DIARRHOEA [None]
  - INFLUENZA LIKE ILLNESS [None]
  - BACK PAIN [None]
  - DEPRESSED MOOD [None]
  - SUICIDAL IDEATION [None]
  - DRUG INEFFECTIVE [None]
  - BONE PAIN [None]
  - ARTHRALGIA [None]
  - HEADACHE [None]
  - DEPRESSION [None]
  - INSOMNIA [None]
  - ANXIETY [None]
